FAERS Safety Report 5721120-5 (Version None)
Quarter: 2008Q2

REPORT INFORMATION
  Report Type: 
  Country: None (occurrence: None)
  Receive Date: 20080423
  Receipt Date: 20071217
  Transmission Date: 20081010
  Serious: Yes (Other)
  Sender: FDA-Public Use
  Company Number: 249728

PATIENT
  Age: 39 Year
  Sex: Female

DRUGS (7)
  1. AVASTIN [Suspect]
     Indication: BREAST CANCER METASTATIC
     Dosage: 702 MG, Q4W, INTRAVENOUS
     Route: 042
  2. ABRAXANE (PACLITAXEL PROTEIN-BOUND/ALBUMIN) [Concomitant]
  3. TAXOTERE [Concomitant]
  4. ROBITUSSIN DM (DEXTROMETHORPHAN HYDROBROMIDE, GUAIFENESIN) [Concomitant]
  5. TYLENOL EXTENDED RELIEF (ACETAMINOPHEN) [Concomitant]
  6. ALBUTEROL (ALBUTEROL/ALBUTEROL SULFATE) [Concomitant]
  7. ADVAIR DISKUS (FLUTICASONE PROPIONATE, SALMETEROL XINAFOATE) [Concomitant]

REACTIONS (1)
  - HAEMOPTYSIS [None]
